FAERS Safety Report 15570001 (Version 1)
Quarter: 2018Q4

REPORT INFORMATION
  Report Type: Spontaneous
  Country: US (occurrence: US)
  Receive Date: 20181031
  Receipt Date: 20181031
  Transmission Date: 20190205
  Serious: Yes (Other)
  Sender: FDA-Public Use
  Company Number: None

PATIENT
  Age: 60 Year
  Sex: Female

DRUGS (3)
  1. LEVOTHYROXINE 88 MCG TABLET [Suspect]
     Active Substance: LEVOTHYROXINE
     Indication: HYPOTHYROIDISM
     Dosage: ?          QUANTITY:30 TABLET(S);?
     Route: 048
     Dates: start: 20180601, end: 20181031
  2. NEUROTIN [Concomitant]
     Active Substance: GABAPENTIN
  3. BIOTIN [Concomitant]
     Active Substance: BIOTIN

REACTIONS (6)
  - Palpitations [None]
  - Anxiety [None]
  - Loss of personal independence in daily activities [None]
  - Nervousness [None]
  - Hyperhidrosis [None]
  - Chest pain [None]

NARRATIVE: CASE EVENT DATE: 20181001
